FAERS Safety Report 5737313-7 (Version None)
Quarter: 2008Q2

REPORT INFORMATION
  Report Type: 
  Country: None (occurrence: None)
  Receive Date: 20080512
  Receipt Date: 20080512
  Transmission Date: 20081010
  Serious: Yes (Death)
  Sender: FDA-Public Use
  Company Number: None

PATIENT
  Age: 91 Year
  Sex: Female
  Weight: 49.8957 kg

DRUGS (1)
  1. DIGITEK  .125 MG  MYLAN [Suspect]
     Indication: HEART RATE INCREASED
     Dosage: 1 TAB 1 DAILY PO
     Route: 048
     Dates: start: 20040101, end: 20080322

REACTIONS (4)
  - CONFUSIONAL STATE [None]
  - DYSSTASIA [None]
  - GENERAL PHYSICAL HEALTH DETERIORATION [None]
  - UNRESPONSIVE TO STIMULI [None]
